FAERS Safety Report 21214903 (Version 1)
Quarter: 2022Q3

REPORT INFORMATION
  Report Type: Spontaneous
  Country: CA (occurrence: CA)
  Receive Date: 20220816
  Receipt Date: 20220816
  Transmission Date: 20221027
  Serious: Yes (Other)
  Sender: FDA-Public Use
  Company Number: CA-TEVA-2022-CA-2063910

PATIENT

DRUGS (43)
  1. BENDAMUSTINE HYDROCHLORIDE [Suspect]
     Active Substance: BENDAMUSTINE HYDROCHLORIDE
     Indication: Marginal zone lymphoma
     Route: 065
  2. BENDAMUSTINE HYDROCHLORIDE [Suspect]
     Active Substance: BENDAMUSTINE HYDROCHLORIDE
     Indication: Mantle cell lymphoma
  3. BENDAMUSTINE HYDROCHLORIDE [Suspect]
     Active Substance: BENDAMUSTINE HYDROCHLORIDE
     Indication: Lymphoplasmacytoid lymphoma/immunocytoma
  4. BENDAMUSTINE HYDROCHLORIDE [Suspect]
     Active Substance: BENDAMUSTINE HYDROCHLORIDE
     Indication: Lymphoma
  5. BENDAMUSTINE HYDROCHLORIDE [Suspect]
     Active Substance: BENDAMUSTINE HYDROCHLORIDE
     Indication: Lymphocytic lymphoma
  6. BENDAMUSTINE HYDROCHLORIDE [Suspect]
     Active Substance: BENDAMUSTINE HYDROCHLORIDE
     Indication: Follicular lymphoma
  7. BENDAMUSTINE HYDROCHLORIDE [Suspect]
     Active Substance: BENDAMUSTINE HYDROCHLORIDE
     Indication: Diffuse large B-cell lymphoma
  8. DOXORUBICIN [Suspect]
     Active Substance: DOXORUBICIN
     Indication: Marginal zone lymphoma
     Route: 065
  9. DOXORUBICIN [Suspect]
     Active Substance: DOXORUBICIN
     Indication: Mantle cell lymphoma
  10. DOXORUBICIN [Suspect]
     Active Substance: DOXORUBICIN
     Indication: Lymphoplasmacytoid lymphoma/immunocytoma
  11. DOXORUBICIN [Suspect]
     Active Substance: DOXORUBICIN
     Indication: Lymphoma
  12. DOXORUBICIN [Suspect]
     Active Substance: DOXORUBICIN
     Indication: Lymphocytic lymphoma
  13. DOXORUBICIN [Suspect]
     Active Substance: DOXORUBICIN
     Indication: Follicular lymphoma
  14. DOXORUBICIN [Suspect]
     Active Substance: DOXORUBICIN
     Indication: Diffuse large B-cell lymphoma
  15. PREDNISONE [Suspect]
     Active Substance: PREDNISONE
     Indication: Marginal zone lymphoma
     Route: 065
  16. PREDNISONE [Suspect]
     Active Substance: PREDNISONE
     Indication: Mantle cell lymphoma
  17. PREDNISONE [Suspect]
     Active Substance: PREDNISONE
     Indication: Lymphoplasmacytoid lymphoma/immunocytoma
  18. PREDNISONE [Suspect]
     Active Substance: PREDNISONE
     Indication: Lymphoma
  19. PREDNISONE [Suspect]
     Active Substance: PREDNISONE
     Indication: Lymphocytic lymphoma
  20. PREDNISONE [Suspect]
     Active Substance: PREDNISONE
     Indication: Follicular lymphoma
  21. PREDNISONE [Suspect]
     Active Substance: PREDNISONE
     Indication: Diffuse large B-cell lymphoma
  22. VINCRISTINE [Suspect]
     Active Substance: VINCRISTINE
     Indication: Marginal zone lymphoma
     Route: 065
  23. VINCRISTINE [Suspect]
     Active Substance: VINCRISTINE
     Indication: Mantle cell lymphoma
  24. VINCRISTINE [Suspect]
     Active Substance: VINCRISTINE
     Indication: Lymphoplasmacytoid lymphoma/immunocytoma
  25. VINCRISTINE [Suspect]
     Active Substance: VINCRISTINE
     Indication: Lymphoma
  26. VINCRISTINE [Suspect]
     Active Substance: VINCRISTINE
     Indication: Lymphocytic lymphoma
  27. VINCRISTINE [Suspect]
     Active Substance: VINCRISTINE
     Indication: Follicular lymphoma
  28. VINCRISTINE [Suspect]
     Active Substance: VINCRISTINE
     Indication: Diffuse large B-cell lymphoma
  29. CYCLOPHOSPHAMIDE [Suspect]
     Active Substance: CYCLOPHOSPHAMIDE
     Indication: Marginal zone lymphoma
     Route: 065
  30. CYCLOPHOSPHAMIDE [Suspect]
     Active Substance: CYCLOPHOSPHAMIDE
     Indication: Mantle cell lymphoma
  31. CYCLOPHOSPHAMIDE [Suspect]
     Active Substance: CYCLOPHOSPHAMIDE
     Indication: Lymphoplasmacytoid lymphoma/immunocytoma
  32. CYCLOPHOSPHAMIDE [Suspect]
     Active Substance: CYCLOPHOSPHAMIDE
     Indication: Lymphoma
  33. CYCLOPHOSPHAMIDE [Suspect]
     Active Substance: CYCLOPHOSPHAMIDE
     Indication: Lymphocytic lymphoma
  34. CYCLOPHOSPHAMIDE [Suspect]
     Active Substance: CYCLOPHOSPHAMIDE
     Indication: Follicular lymphoma
  35. CYCLOPHOSPHAMIDE [Suspect]
     Active Substance: CYCLOPHOSPHAMIDE
     Indication: Diffuse large B-cell lymphoma
  36. RITUXIMAB [Suspect]
     Active Substance: RITUXIMAB
     Indication: Marginal zone lymphoma
     Route: 065
  37. RITUXIMAB [Suspect]
     Active Substance: RITUXIMAB
     Indication: Mantle cell lymphoma
  38. RITUXIMAB [Suspect]
     Active Substance: RITUXIMAB
     Indication: Lymphoplasmacytoid lymphoma/immunocytoma
  39. RITUXIMAB [Suspect]
     Active Substance: RITUXIMAB
     Indication: Lymphoma
  40. RITUXIMAB [Suspect]
     Active Substance: RITUXIMAB
     Indication: Lymphocytic lymphoma
  41. RITUXIMAB [Suspect]
     Active Substance: RITUXIMAB
     Indication: Follicular lymphoma
  42. RITUXIMAB [Suspect]
     Active Substance: RITUXIMAB
     Indication: Diffuse large B-cell lymphoma
  43. TOZINAMERAN [Concomitant]
     Active Substance: TOZINAMERAN
     Indication: Product used for unknown indication

REACTIONS (4)
  - Humoral immune defect [Recovered/Resolved]
  - Non-Hodgkin^s lymphoma recurrent [Recovered/Resolved]
  - B-lymphocyte count decreased [Recovered/Resolved]
  - CD4 lymphocytes decreased [Recovered/Resolved]
